FAERS Safety Report 4640875-4 (Version None)
Quarter: 2005Q2

REPORT INFORMATION
  Report Type: 
  Country: None (occurrence: None)
  Receive Date: 20050324
  Receipt Date: 20041222
  Transmission Date: 20051028
  Serious: Yes (Other)
  Sender: FDA-Public Use
  Company Number: 211301

PATIENT
  Age: 72 Year
  Sex: Female

DRUGS (7)
  1. AVASTIN [Suspect]
     Indication: RECTAL CANCER
     Dosage: 5 MG/KG, Q2W, INTRAVENOUS
     Route: 042
     Dates: start: 20041007
  2. OXALIPLATIN (OXALIPLATIN) [Suspect]
     Indication: RECTAL CANCER
     Dosage: Q2W, INTRAVENOUS
     Route: 042
     Dates: start: 20041007
  3. FLUOROURACIL [Concomitant]
  4. LEUCOVORIN CALCIUM [Concomitant]
  5. ALOXI (PALONOSETRON) [Concomitant]
  6. DECADRON SRC [Concomitant]
  7. HYDROCORTISONE [Concomitant]

REACTIONS (4)
  - DYSPNOEA [None]
  - HYPERSENSITIVITY [None]
  - SWOLLEN TONGUE [None]
  - TACHYCARDIA [None]
